FAERS Safety Report 8010878-0 (Version None)
Quarter: 2011Q4

REPORT INFORMATION
  Report Type: 
  Country: None (occurrence: None)
  Receive Date: 20111228
  Receipt Date: 20111108
  Transmission Date: 20120403
  Serious: Yes (Death, Life-Threatening, Hospitalization)
  Sender: FDA-Public Use
  Company Number: EC-ROCHE-1009970

PATIENT
  Age: 68 Year
  Sex: Female
  Weight: 62.652 kg

DRUGS (3)
  1. FOLIC ACID [Concomitant]
  2. DEXAMETHASONE [Concomitant]
     Route: 042
     Dates: start: 20110626
  3. BONIVA [Suspect]
     Indication: OSTEOPOROSIS
     Dosage: LAST APPLICATION: 21/SEP/2011
     Route: 042
     Dates: start: 20110317

REACTIONS (7)
  - COUGH [None]
  - PNEUMONIA PNEUMOCOCCAL [None]
  - LEUKOCYTOSIS [None]
  - ATELECTASIS [None]
  - PATHOGEN RESISTANCE [None]
  - LUNG INFECTION [None]
  - DYSPNOEA [None]
